FAERS Safety Report 7893764-6 (Version None)
Quarter: 2011Q4

REPORT INFORMATION
  Report Type: 
  Country: None (occurrence: None)
  Receive Date: 20111104
  Receipt Date: 20111102
  Transmission Date: 20120403
  Serious: Yes (Hospitalization, Other)
  Sender: FDA-Public Use
  Company Number: DE-ABBOTT-11P-062-0870236-00

PATIENT
  Sex: Female

DRUGS (2)
  1. HUMIRA [Suspect]
     Indication: PSORIASIS
     Route: 058
     Dates: start: 20090428
  2. HUMIRA [Suspect]

REACTIONS (5)
  - PSORIASIS [None]
  - OCULAR VASCULAR DISORDER [None]
  - BLINDNESS [None]
  - BLINDNESS UNILATERAL [None]
  - CONDITION AGGRAVATED [None]
